FAERS Safety Report 8921119 (Version 1)
Quarter: 2012Q4

REPORT INFORMATION
  Report Type: 
  Country: US (occurrence: US)
  Receive Date: 20121123
  Receipt Date: 20121123
  Transmission Date: 20130627
  Serious: Yes (Other)
  Sender: FDA-Public Use
  Company Number: US-AMGEN-USASP2012074734

PATIENT
  Age: 62 Year
  Sex: Male

DRUGS (1)
  1. SENSIPAR [Suspect]
     Indication: HYPERPARATHYROIDISM SECONDARY
     Dosage: 30 mg, bid

REACTIONS (8)
  - Abasia [Unknown]
  - Thyroid operation [Unknown]
  - Parathyroid gland operation [Unknown]
  - Arthropathy [Unknown]
  - Asthenia [Unknown]
  - Mobility decreased [Unknown]
  - Hypercalcaemia [Unknown]
  - Vomiting [Unknown]
